FAERS Safety Report 10519294 (Version 1)
Quarter: 2014Q4

REPORT INFORMATION
  Report Type: Spontaneous
  Country: US (occurrence: None)
  Receive Date: 20141014
  Receipt Date: 20141014
  Transmission Date: 20150528
  Serious: Yes (Other)
  Sender: FDA-Public Use
  Company Number: None

PATIENT
  Age: 36 Year
  Sex: Female
  Weight: 83.92 kg

DRUGS (2)
  1. LOTEMAX [Suspect]
     Active Substance: LOTEPREDNOL ETABONATE
     Indication: OCULAR HYPERAEMIA
     Dosage: 1 DROP  FOUR TIMES DAILY INTO THE EYE
  2. LOTEMAX [Suspect]
     Active Substance: LOTEPREDNOL ETABONATE
     Indication: EYE SWELLING
     Dosage: 1 DROP  FOUR TIMES DAILY INTO THE EYE

REACTIONS (2)
  - Suppressed lactation [None]
  - Exposure during breast feeding [None]

NARRATIVE: CASE EVENT DATE: 20141006
